FAERS Safety Report 4421970-1 (Version None)
Quarter: 2004Q3

REPORT INFORMATION
  Report Type: 
  Country: None (occurrence: None)
  Receive Date: 20040805
  Receipt Date: 20040728
  Transmission Date: 20050211
  Serious: Yes (Other)
  Sender: FDA-Public Use
  Company Number: S04-USA-03832-01

PATIENT
  Age: 89 Year
  Sex: Female
  Weight: 63.9572 kg

DRUGS (17)
  1. NAMENDA [Suspect]
     Indication: DEMENTIA ALZHEIMER'S TYPE
     Dosage: 10 MG BID PO
     Route: 048
     Dates: start: 20040531
  2. NAMENDA [Suspect]
     Indication: DEMENTIA ALZHEIMER'S TYPE
     Dosage: 5 MG QD PO
     Route: 048
     Dates: start: 20040510, end: 20040516
  3. NAMENDA [Suspect]
     Indication: DEMENTIA ALZHEIMER'S TYPE
     Dosage: 10 MG QD PO
     Route: 048
     Dates: start: 20040517, end: 20040523
  4. NAMENDA [Suspect]
     Indication: DEMENTIA ALZHEIMER'S TYPE
     Dosage: 15 MG QD PO
     Route: 048
     Dates: start: 20040524, end: 20040530
  5. DULCOLAX [Concomitant]
  6. TYLENOL [Concomitant]
  7. METFORMIN HCL [Concomitant]
  8. REGLAN [Concomitant]
  9. ACTOS [Concomitant]
  10. LEXAPRO [Concomitant]
  11. EVISTA [Concomitant]
  12. LASIX [Concomitant]
  13. POTASSIUM [Concomitant]
  14. GLYBURIDE [Concomitant]
  15. SEROQUEL [Concomitant]
  16. REMERON [Concomitant]
  17. PRAVACHOL [Concomitant]

REACTIONS (2)
  - BLOOD GLUCOSE DECREASED [None]
  - BLOOD GLUCOSE INCREASED [None]
